FAERS Safety Report 10256281 (Version 1)
Quarter: 2014Q2

REPORT INFORMATION
  Report Type: Spontaneous
  Country: US (occurrence: US)
  Receive Date: 20140624
  Receipt Date: 20140624
  Transmission Date: 20141212
  Serious: No
  Sender: FDA-Public Use
  Company Number: US-ZOGENIX, INC.-2012ZX000135

PATIENT
  Sex: Female
  Weight: 81.72 kg

DRUGS (13)
  1. SUMAVEL DOSEPRO [Suspect]
     Indication: MIGRAINE
  2. RELPAX [Concomitant]
     Indication: MIGRAINE
     Route: 048
  3. ONDANSETRON [Concomitant]
     Indication: NAUSEA
     Route: 048
  4. LOSARTIN [Concomitant]
     Indication: PULMONARY HYPERTENSION
     Route: 048
  5. METOPROLOL [Concomitant]
     Indication: HEART RATE
     Route: 048
  6. GABAPENTIN [Concomitant]
     Indication: MIGRAINE PROPHYLAXIS
     Route: 048
  7. AMBIEN [Concomitant]
     Indication: SLEEP DISORDER
     Route: 048
  8. ALPRAZOLAM [Concomitant]
     Indication: PANIC DISORDER
     Route: 048
  9. PERCOCET [Concomitant]
     Indication: PAIN
     Route: 048
  10. KETOROLAC [Concomitant]
     Indication: PAIN
     Route: 048
  11. ASPIRIN [Concomitant]
     Indication: PRODUCT USED FOR UNKNOWN INDICATION
     Route: 048
  12. MAGNESIUM [Concomitant]
     Indication: VITAMIN SUPPLEMENTATION
     Route: 048
  13. DILAUDID [Concomitant]
     Indication: PAIN
     Route: 048

REACTIONS (2)
  - Injection site pain [Recovered/Resolved]
  - Somnolence [Recovered/Resolved]
